FAERS Safety Report 5915719-0 (Version None)
Quarter: 2008Q4

REPORT INFORMATION
  Report Type: 
  Country: None (occurrence: None)
  Receive Date: 20081010
  Receipt Date: 20080930
  Transmission Date: 20090506
  Serious: Yes (Other)
  Sender: FDA-Public Use
  Company Number: JP-PFIZER INC-2008050110

PATIENT
  Age: 44 Year
  Sex: Female

DRUGS (1)
  1. CHANTIX [Suspect]
     Indication: NICOTINE DEPENDENCE
     Dosage: DAILY DOSE:2MG
     Route: 048
     Dates: start: 20080527

REACTIONS (7)
  - COGNITIVE DISORDER [None]
  - DEPRESSED MOOD [None]
  - DEPRESSION [None]
  - LISTLESS [None]
  - LOSS OF CONSCIOUSNESS [None]
  - MEMORY IMPAIRMENT [None]
  - NAUSEA [None]
